FAERS Safety Report 5153278-3 (Version None)
Quarter: 2006Q4

REPORT INFORMATION
  Report Type: 
  Country: None (occurrence: None)
  Receive Date: 20061117
  Receipt Date: 20061115
  Transmission Date: 20070319
  Serious: Yes (Life-Threatening, Hospitalization)
  Sender: FDA-Public Use
  Company Number: AU-SANOFI-SYNTHELABO-F01200602326

PATIENT
  Sex: Female

DRUGS (9)
  1. ACETAMINOPHEN [Concomitant]
     Dates: start: 20060117, end: 20060306
  2. CLARITIN [Concomitant]
     Dates: start: 20060117, end: 20060306
  3. DEXAMETASON [Concomitant]
     Dates: start: 20060117, end: 20060309
  4. ONDANSETRON [Concomitant]
     Dates: start: 20060117, end: 20060308
  5. SOMAC [Concomitant]
     Dates: start: 20051115
  6. BEVACIZUMAB [Suspect]
     Route: 042
     Dates: start: 20060309, end: 20060309
  7. LEUCOVORIN CALCIUM [Suspect]
     Route: 042
     Dates: start: 20060308, end: 20060309
  8. FLUOROURACIL [Suspect]
     Route: 042
     Dates: start: 20060308, end: 20060309
  9. OXALIPLATIN [Suspect]
     Indication: COLON CANCER
     Route: 042

REACTIONS (4)
  - CHEST PAIN [None]
  - LUNG NEOPLASM [None]
  - PULMONARY ARTERY THROMBOSIS [None]
  - PULMONARY EMBOLISM [None]
